FAERS Safety Report 22053233 (Version 1)
Quarter: 2023Q1

REPORT INFORMATION
  Report Type: Other
  Country: US (occurrence: None)
  Receive Date: 20230302
  Receipt Date: 20230302
  Transmission Date: 20230417
  Serious: Yes (Other)
  Sender: FDA-Public Use
  Company Number: US-ROCHE-3296714

PATIENT
  Age: 67 Year
  Sex: Male

DRUGS (4)
  1. XELODA [Suspect]
     Active Substance: CAPECITABINE
     Indication: Colon cancer
     Dosage: TAKE 4 TABLET(S) BY MOUTH TWICE A DAY 2 WEEK(S) ON, 1 WEEK(S) OFF EVERY 21 DAY(S)
     Route: 048
  2. XELODA [Suspect]
     Active Substance: CAPECITABINE
     Indication: Metastases to liver
     Dosage: TAKE 1 TABLET BY MOUTH TWICE A DAY 2 WEEK(S) ON, 1 WEEK(S) OFF EVERY 21 DAY(S)
     Route: 048
  3. XELODA [Suspect]
     Active Substance: CAPECITABINE
     Indication: Metastases to central nervous system
  4. XELODA [Suspect]
     Active Substance: CAPECITABINE
     Indication: Cholangiocarcinoma

REACTIONS (1)
  - Seizure [Unknown]
